FAERS Safety Report 9284202 (Version 1)
Quarter: 2013Q2

REPORT INFORMATION
  Report Type: Spontaneous
  Country: US (occurrence: US)
  Receive Date: 20130510
  Receipt Date: 20130510
  Transmission Date: 20140414
  Serious: Yes (Other)
  Sender: FDA-Public Use
  Company Number: US-JNJFOC-20130502033

PATIENT
  Age: 78 Year
  Sex: Male
  Weight: 81.65 kg

DRUGS (16)
  1. NEOSPORIN ORIGINAL OINTMENT UNSPECIFIED [Suspect]
     Indication: INFECTION PROPHYLAXIS
     Dosage: DIME-SIZE, AT NIGHT
     Route: 061
     Dates: start: 201304, end: 20130429
  2. LASIX [Concomitant]
     Indication: CARDIAC DISORDER
     Dosage: OVER 10 YEARS
     Route: 065
  3. K-DUR [Concomitant]
     Indication: BLOOD POTASSIUM
     Dosage: 20 MEG 2/DAY, OVER 10 YEARS
     Route: 065
  4. LOVASTATIN [Concomitant]
     Indication: BLOOD CHOLESTEROL
     Dosage: FOR 8-9 YEARS
     Route: 065
  5. ANTIVERT [Concomitant]
     Indication: VERTIGO
     Route: 065
     Dates: start: 1999
  6. CALCIUM [Concomitant]
     Indication: OSTEOPOROSIS
     Dosage: OVER 20 YEARS
     Route: 065
  7. AVODART [Concomitant]
     Indication: PROSTATIC DISORDER
     Route: 065
     Dates: start: 2000
  8. CARDIZEM [Concomitant]
     Indication: CARDIAC DISORDER
     Dosage: 300 MILIGRAM 1/DAY, 120 MG 1/NIGHT
     Route: 065
     Dates: start: 1984
  9. FIBERCON [Concomitant]
     Indication: DYSPEPSIA
     Dosage: OVER 20 YEARS
     Route: 065
  10. PRILOSEC [Concomitant]
     Indication: GASTROOESOPHAGEAL REFLUX DISEASE
     Dosage: OVER 20 YEARS
     Route: 065
  11. VITAMIN B COMPLEX [Concomitant]
     Indication: ROUTINE HEALTH MAINTENANCE
     Route: 065
     Dates: start: 2011
  12. VITAMIN C [Concomitant]
     Indication: ROUTINE HEALTH MAINTENANCE
     Route: 065
     Dates: start: 2011
  13. FISH OIL [Concomitant]
     Indication: ROUTINE HEALTH MAINTENANCE
     Dosage: SINCE 4-5 YEARS
     Route: 065
  14. PRESERVISION [Concomitant]
     Indication: EYE DISORDER
     Route: 065
     Dates: start: 1999
  15. VITAMIN D [Concomitant]
     Indication: ROUTINE HEALTH MAINTENANCE
     Route: 065
     Dates: start: 2011
  16. ASPIRIN [Concomitant]
     Indication: CARDIAC DISORDER
     Route: 065
     Dates: start: 1984

REACTIONS (4)
  - Application site infection [Recovering/Resolving]
  - Application site erythema [Recovering/Resolving]
  - Application site hypersensitivity [Recovering/Resolving]
  - Drug ineffective [Unknown]
